FAERS Safety Report 22240845 (Version 2)
Quarter: 2023Q2

REPORT INFORMATION
  Report Type: Spontaneous
  Country: AU (occurrence: AU)
  Receive Date: 20230421
  Receipt Date: 20230501
  Transmission Date: 20230722
  Serious: Yes (Hospitalization)
  Sender: FDA-Public Use
  Company Number: AU-TASMAN PHARMA, INC.-2023TSM00088

PATIENT
  Sex: Female

DRUGS (7)
  1. VERSACLOZ [Suspect]
     Active Substance: CLOZAPINE
     Dosage: 450 MG
     Dates: start: 20221015, end: 20221102
  2. VERSACLOZ [Suspect]
     Active Substance: CLOZAPINE
     Dosage: 500 MG
     Dates: start: 20221103, end: 20221212
  3. VERSACLOZ [Suspect]
     Active Substance: CLOZAPINE
     Dosage: 500 MG
     Dates: start: 20230125, end: 20230320
  4. CLOZAPINE [Suspect]
     Active Substance: CLOZAPINE
     Dosage: 500 MG
     Dates: start: 20221213, end: 20221227
  5. CLOZAPINE [Suspect]
     Active Substance: CLOZAPINE
     Dosage: 500 MG
     Dates: start: 20230419
  6. CLOZAPINE [Suspect]
     Active Substance: CLOZAPINE
     Dosage: 500 MG
     Dates: start: 20221228, end: 20230124
  7. CLOZAPINE [Suspect]
     Active Substance: CLOZAPINE
     Dosage: 500 MG
     Dates: start: 20230321, end: 20230418

REACTIONS (2)
  - Hospitalisation [Recovered/Resolved]
  - Neutrophil count decreased [Recovered/Resolved]

NARRATIVE: CASE EVENT DATE: 20221213
